FAERS Safety Report 7675795-4 (Version None)
Quarter: 2011Q3

REPORT INFORMATION
  Report Type: 
  Country: None (occurrence: None)
  Receive Date: 20110810
  Receipt Date: 20110801
  Transmission Date: 20111222
  Serious: Yes (Hospitalization, Other)
  Sender: FDA-Public Use
  Company Number: US-ASTRAZENECA-2011SE36136

PATIENT
  Age: 62 Year
  Sex: Female

DRUGS (2)
  1. PULMICORT FLEXHALER [Suspect]
     Route: 055
  2. AZMACORT [Concomitant]

REACTIONS (2)
  - EMPHYSEMA [None]
  - ACTIVITIES OF DAILY LIVING IMPAIRED [None]
